FAERS Safety Report 22936656 (Version 2)
Quarter: 2023Q4

REPORT INFORMATION
  Report Type: Spontaneous
  Country: DE (occurrence: DE)
  Receive Date: 20230912
  Receipt Date: 20231011
  Transmission Date: 20240110
  Serious: Yes (Other)
  Sender: FDA-Public Use
  Company Number: DE-PFIZER INC-202300297268

PATIENT
  Age: 16 Year
  Sex: Female
  Weight: 166 kg

DRUGS (2)
  1. XELJANZ [Suspect]
     Active Substance: TOFACITINIB CITRATE
     Indication: Juvenile idiopathic arthritis
     Dosage: 5 MG, 2X/DAY
     Route: 048
     Dates: start: 20220425, end: 20230906
  2. NAPROXEN [Suspect]
     Active Substance: NAPROXEN
     Dosage: 375 MG
     Dates: start: 20220425

REACTIONS (4)
  - Blood creatine phosphokinase increased [Recovered/Resolved]
  - Aspartate aminotransferase increased [Unknown]
  - Alanine aminotransferase increased [Unknown]
  - Blood lactate dehydrogenase increased [Unknown]

NARRATIVE: CASE EVENT DATE: 20230905
